FAERS Safety Report 16056559 (Version 1)
Quarter: 2019Q2

REPORT INFORMATION
  Report Type: Spontaneous
  Country: US (occurrence: US)
  Receive Date: 20190309
  Receipt Date: 20190309
  Transmission Date: 20190711
  Serious: Yes (Life-Threatening, Hospitalization)
  Sender: FDA-Public Use
  Company Number: None

PATIENT
  Age: 82 Year
  Sex: Male
  Weight: 81 kg

DRUGS (1)
  1. TRAMADOL. [Suspect]
     Active Substance: TRAMADOL
     Indication: PAIN
     Dates: start: 20190205, end: 20190209

REACTIONS (8)
  - Serotonin syndrome [None]
  - Tremor [None]
  - Hip fracture [None]
  - Cognitive disorder [None]
  - Sepsis [None]
  - Pyrexia [None]
  - White blood cell count increased [None]
  - Infection [None]

NARRATIVE: CASE EVENT DATE: 20190209
